FAERS Safety Report 7921518-0 (Version None)
Quarter: 2011Q4

REPORT INFORMATION
  Report Type: 
  Country: None (occurrence: None)
  Receive Date: 20111117
  Receipt Date: 20110819
  Transmission Date: 20120403
  Serious: No
  Sender: FDA-Public Use
  Company Number: US-MYLANLABS-2011S1016565

PATIENT
  Age: 65 Year
  Sex: Female

DRUGS (2)
  1. TRIAMTERENE AND HYDROCHLOROTHIAZIDE [Suspect]
     Indication: BLOOD PRESSURE INCREASED
     Route: 048
     Dates: start: 20110426, end: 20110720
  2. TRIAMTERENE AND HYDROCHLOROTHIAZIDE [Suspect]
     Route: 048
     Dates: start: 20110426, end: 20110720

REACTIONS (4)
  - OEDEMA PERIPHERAL [None]
  - WEIGHT INCREASED [None]
  - OEDEMA [None]
  - MUSCULOSKELETAL STIFFNESS [None]
